FAERS Safety Report 8188940-1 (Version None)
Quarter: 2012Q1

REPORT INFORMATION
  Report Type: 
  Country: None (occurrence: None)
  Receive Date: 20120306
  Receipt Date: 20120302
  Transmission Date: 20120608
  Serious: Yes (Hospitalization)
  Sender: FDA-Public Use
  Company Number: US-VERTEX PHARMACEUTICALS INC.-AE-2012-002495

PATIENT
  Sex: Male

DRUGS (7)
  1. INCIVEK [Suspect]
     Indication: HEPATITIS C
     Route: 048
     Dates: start: 20111220
  2. ASPIRIN [Concomitant]
  3. RIBAVIRIN [Concomitant]
     Indication: HEPATITIS C
     Route: 048
     Dates: start: 20111220
  4. HYDROCHLOROTHIAZIDE [Concomitant]
  5. PEGASYS [Concomitant]
     Indication: HEPATITIS C
     Route: 058
     Dates: start: 20111220
  6. LEVOTHYROXINE SODIUM [Concomitant]
  7. METFORMIN HCL [Concomitant]

REACTIONS (4)
  - WHITE BLOOD CELL COUNT DECREASED [None]
  - OROPHARYNGEAL PAIN [None]
  - FUNGAL INFECTION [None]
  - RED BLOOD CELL COUNT DECREASED [None]
